FAERS Safety Report 4648488-5 (Version None)
Quarter: 2005Q2

REPORT INFORMATION
  Report Type: 
  Country: None (occurrence: None)
  Receive Date: 20050429
  Receipt Date: 20050420
  Transmission Date: 20051028
  Serious: Yes (Hospitalization)
  Sender: FDA-Public Use
  Company Number: GB-ABBOTT-05P-167-0298022-00

PATIENT
  Age: 28 Year
  Sex: Male

DRUGS (2)
  1. EPILIM TABLETS [Suspect]
     Indication: DRUG USE FOR UNKNOWN INDICATION
     Route: 048
     Dates: end: 20050301
  2. EPILIM TABLETS [Suspect]
     Route: 048
     Dates: start: 20050301

REACTIONS (4)
  - CONVULSION [None]
  - HEAD INJURY [None]
  - MYOCLONUS [None]
  - WEIGHT INCREASED [None]
